FAERS Safety Report 8525738-6 (Version None)
Quarter: 2012Q3

REPORT INFORMATION
  Report Type: 
  Country: None (occurrence: None)
  Receive Date: 20120720
  Receipt Date: 20120709
  Transmission Date: 20120928
  Serious: Yes (Hospitalization)
  Sender: FDA-Public Use
  Company Number: US-MSD-1201USA02817

PATIENT

DRUGS (1)
  1. SINGULAIR [Suspect]
     Dosage: 5 MG, UNK
     Route: 048

REACTIONS (1)
  - MALAISE [None]
